FAERS Safety Report 8168218-2 (Version None)
Quarter: 2012Q1

REPORT INFORMATION
  Report Type: 
  Country: None (occurrence: None)
  Receive Date: 20120227
  Receipt Date: 20120222
  Transmission Date: 20120608
  Serious: Yes (Hospitalization, Other)
  Sender: FDA-Public Use
  Company Number: US-PFIZER INC-2011204180

PATIENT
  Sex: Female

DRUGS (7)
  1. KETOCONAZOLE [Concomitant]
     Indication: ROSACEA
     Dosage: UNK
     Dates: start: 19940101
  2. TETRACYCLINE [Concomitant]
     Indication: ROSACEA
     Dosage: UNK
     Dates: start: 19920101, end: 20110101
  3. VITAMIN D [Concomitant]
     Indication: VITAMIN SUPPLEMENTATION
     Dosage: UNK
     Dates: start: 20070101
  4. CHANTIX [Suspect]
     Indication: SMOKING CESSATION THERAPY
     Dosage: STARTER PACK
     Dates: start: 20071001, end: 20070101
  5. LOVASTATIN [Concomitant]
     Indication: BLOOD CHOLESTEROL INCREASED
     Dosage: UNK
     Dates: start: 19970101, end: 20110101
  6. CHANTIX [Suspect]
     Dosage: 1 MG, UNK
     Dates: start: 20090201, end: 20090324
  7. CHANTIX [Suspect]
     Dosage: CONTINUING PACK
     Dates: start: 20080101, end: 20080101

REACTIONS (10)
  - FACIAL BONES FRACTURE [None]
  - SKULL FRACTURED BASE [None]
  - MUSCLE SPASMS [None]
  - BACK PAIN [None]
  - HAEMATOMA [None]
  - NECK PAIN [None]
  - LOSS OF CONSCIOUSNESS [None]
  - CERVICAL VERTEBRAL FRACTURE [None]
  - FALL [None]
  - LIMB DEFORMITY [None]
